FAERS Safety Report 7458837-0 (Version None)
Quarter: 2011Q2

REPORT INFORMATION
  Report Type: 
  Country: None (occurrence: None)
  Receive Date: 20110504
  Receipt Date: 20110429
  Transmission Date: 20111010
  Serious: Yes (Hospitalization)
  Sender: FDA-Public Use
  Company Number: DE-ROCHE-771637

PATIENT
  Sex: Male
  Weight: 70 kg

DRUGS (3)
  1. CAPECITABINE [Suspect]
     Indication: RECTAL CANCER
     Dosage: LAST DOSE PRIOR TO SAE : 15 FEBRUARY 2011, SCHEDULE: 825 MG/M2 BID W/O WEEKENDS + OPTIONAL BOOST.
     Route: 048
     Dates: start: 20110111
  2. FRAXIPARIN [Concomitant]
     Indication: THROMBOSIS PROPHYLAXIS
     Dosage: SCHEDULE: 0-0-1
     Route: 058
     Dates: start: 20110414
  3. OXALIPLATIN [Suspect]
     Indication: RECTAL CANCER
     Dosage: LAST DOSE PRIOR TO SAE: 08 FEBRUARY 2011, DOSE SCHEDULE: 50 MG/M2 ON D1, 8, 15, 22 AND 29.
     Route: 042
     Dates: start: 20110111

REACTIONS (1)
  - ANASTOMOTIC COMPLICATION [None]
